FAERS Safety Report 12999810 (Version 4)
Quarter: 2017Q2

REPORT INFORMATION
  Report Type: Report from Study
  Country: US (occurrence: US)
  Receive Date: 20161205
  Receipt Date: 20170605
  Transmission Date: 20170830
  Serious: Yes (Hospitalization, Other)
  Sender: FDA-Public Use
  Company Number: US-ACTELION-A-US2016-146293

PATIENT
  Age: 68 Year
  Sex: Male
  Weight: 112.47 kg

DRUGS (6)
  1. SILDENAFIL CITRATE. [Concomitant]
     Active Substance: SILDENAFIL CITRATE
  2. OXYCODONE [Concomitant]
     Active Substance: OXYCODONE
     Route: 065
  3. OPSUMIT [Suspect]
     Active Substance: MACITENTAN
     Indication: PULMONARY ARTERIAL HYPERTENSION
     Dosage: 10 MG, QD
     Route: 048
     Dates: start: 20140317
  4. CYMBALTA [Suspect]
     Active Substance: DULOXETINE HYDROCHLORIDE
     Indication: NEURALGIA
     Route: 065
  5. AMLODIPINE [Concomitant]
     Active Substance: AMLODIPINE BESYLATE
  6. ADCIRCA [Concomitant]
     Active Substance: TADALAFIL

REACTIONS (11)
  - Medical procedure [Unknown]
  - Nausea [Unknown]
  - Prostatectomy [Unknown]
  - Headache [Unknown]
  - Neuropathy peripheral [Unknown]
  - Fall [Unknown]
  - Neuralgia [Unknown]
  - Feeling abnormal [Unknown]
  - Prostate cancer [Unknown]
  - Abdominal distension [Unknown]
  - Dizziness [Unknown]
